FAERS Safety Report 7443477-X (Version None)
Quarter: 2011Q2

REPORT INFORMATION
  Report Type: 
  Country: None (occurrence: None)
  Receive Date: 20110428
  Receipt Date: 20110420
  Transmission Date: 20111010
  Serious: Yes (Hospitalization, Other)
  Sender: FDA-Public Use
  Company Number: US-ASTRAZENECA-2009SE25839

PATIENT
  Age: 76 Year
  Sex: Female
  Weight: 72.6 kg

DRUGS (5)
  1. CALCIUM [Concomitant]
  2. FISH OIL [Concomitant]
  3. ZOCOR [Concomitant]
     Indication: HYPERCHOLESTEROLAEMIA
     Route: 048
  4. LOTREL [Concomitant]
     Indication: HYPERTENSION
     Route: 048
  5. ARIMIDEX [Suspect]
     Indication: BREAST CANCER
     Route: 048
     Dates: start: 20090701, end: 20100701

REACTIONS (14)
  - CHEST DISCOMFORT [None]
  - HOT FLUSH [None]
  - INSOMNIA [None]
  - EXTRASYSTOLES [None]
  - ABDOMINAL PAIN UPPER [None]
  - ALOPECIA [None]
  - DIZZINESS [None]
  - URINARY TRACT INFECTION [None]
  - CARDIAC PACEMAKER INSERTION [None]
  - HEART RATE DECREASED [None]
  - ARTHRALGIA [None]
  - FAECES DISCOLOURED [None]
  - BONE PAIN [None]
  - PRURITUS GENERALISED [None]
